FAERS Safety Report 24603079 (Version 1)
Quarter: 2024Q4

REPORT INFORMATION
  Report Type: Report from Study
  Country: CA (occurrence: CA)
  Receive Date: 20241111
  Receipt Date: 20241111
  Transmission Date: 20250115
  Serious: Yes (Hospitalization)
  Sender: JOHNSON AND JOHNSON
  Company Number: CA-JNJFOC-20241106137

PATIENT
  Age: 69 Year
  Sex: Female

DRUGS (2)
  1. TREMFYA [Suspect]
     Active Substance: GUSELKUMAB
     Indication: Psoriasis
     Route: 058
     Dates: start: 20200624
  2. TREMFYA [Suspect]
     Active Substance: GUSELKUMAB

REACTIONS (5)
  - COVID-19 [Recovering/Resolving]
  - Haematological infection [Recovering/Resolving]
  - Gastric infection [Recovering/Resolving]
  - Conjunctivitis [Recovering/Resolving]
  - Inappropriate schedule of product administration [Unknown]
